FAERS Safety Report 18056289 (Version 2)
Quarter: 2020Q4

REPORT INFORMATION
  Report Type: Spontaneous
  Country: MX (occurrence: MX)
  Receive Date: 20200722
  Receipt Date: 20201030
  Transmission Date: 20210113
  Serious: Yes (Other)
  Sender: FDA-Public Use
  Company Number: MX-JNJFOC-20200728445

PATIENT
  Age: 74 Year
  Sex: Male
  Weight: 58 kg

DRUGS (2)
  1. XARELTO [Suspect]
     Active Substance: RIVAROXABAN
     Indication: PRODUCT USED FOR UNKNOWN INDICATION
     Dosage: 2.5 MG, BID
     Route: 048
     Dates: start: 20190506, end: 202006
  2. XARELTO [Suspect]
     Active Substance: RIVAROXABAN
     Dosage: 2.5 MG, BID
     Route: 048

REACTIONS (4)
  - Colitis [Unknown]
  - Arthralgia [Unknown]
  - Abdominal discomfort [Unknown]
  - Cartilage injury [Unknown]

NARRATIVE: CASE EVENT DATE: 202006
